FAERS Safety Report 14183802 (Version 1)
Quarter: 2017Q4

REPORT INFORMATION
  Report Type: Spontaneous
  Country: CN (occurrence: CN)
  Receive Date: 20171113
  Receipt Date: 20171113
  Transmission Date: 20180321
  Serious: Yes (Other)
  Sender: FDA-Public Use
  Company Number: CN-BRACCO-2017CN05019

PATIENT
  Age: 73 Year
  Sex: Male

DRUGS (1)
  1. IOPAMIRO [Suspect]
     Active Substance: IOPAMIDOL
     Indication: COMPUTERISED TOMOGRAM LIVER
     Dosage: UNK UNK, SINGLE
     Route: 042
     Dates: start: 20171027, end: 20171027

REACTIONS (2)
  - Hepatic vein embolism [Unknown]
  - Pyrexia [Unknown]

NARRATIVE: CASE EVENT DATE: 20171027
